FAERS Safety Report 9156708 (Version 4)
Quarter: 2013Q3

REPORT INFORMATION
  Report Type: Spontaneous
  Country: GB (occurrence: GB)
  Receive Date: 20130312
  Receipt Date: 20130712
  Transmission Date: 20140515
  Serious: Yes (Hospitalization, Other)
  Sender: FDA-Public Use
  Company Number: GB-VERTEX PHARMACEUTICALS INC.-2013-003347

PATIENT
  Age: 59 Year
  Sex: Female
  Weight: 62.8 kg

DRUGS (5)
  1. INCIVO [Suspect]
     Indication: HEPATITIS C
     Dosage: FINISHED COURSE AT 12 WEEKS
     Route: 048
     Dates: start: 20121114, end: 20130129
  2. PEG INTERFERON [Concomitant]
     Indication: HEPATITIS C
     Dosage: DOSAGE FORM: UNSPECIFIED
     Route: 065
     Dates: start: 20121114
  3. RIBAVIRIN [Concomitant]
     Indication: HEPATITIS C
     Dosage: 1000 MG, QD
     Dates: start: 20121114
  4. RIBAVIRIN [Concomitant]
     Dosage: DOSAGE FORM: CAPSULE
     Route: 065
  5. RIBAVIRIN [Concomitant]
     Dosage: DOSAGE FORM: CAPSULE
     Route: 065

REACTIONS (5)
  - Joint swelling [Unknown]
  - Swelling face [Unknown]
  - Rash [Not Recovered/Not Resolved]
  - Anaemia [Unknown]
  - Dermatitis exfoliative [Not Recovered/Not Resolved]
